FAERS Safety Report 15214855 (Version 1)
Quarter: 2018Q3

REPORT INFORMATION
  Report Type: Report from Study
  Country: FR (occurrence: FR)
  Receive Date: 20180730
  Receipt Date: 20180730
  Transmission Date: 20181010
  Serious: Yes (Life-Threatening)
  Sender: FDA-Public Use
  Company Number: FR-TEVA-2018-FR-931969

PATIENT
  Age: 65 Year
  Sex: Male
  Weight: 99 kg

DRUGS (16)
  1. APREPITANT. [Concomitant]
     Active Substance: APREPITANT
     Indication: NAUSEA
     Dosage: 80 MILLIGRAM DAILY; 80 MG, DAILY
     Route: 048
     Dates: start: 20171208, end: 20171210
  2. DEXAMETHASONE. [Concomitant]
     Active Substance: DEXAMETHASONE
     Indication: PROPHYLAXIS
     Dosage: 20 MILLIGRAM DAILY; 20 MG, DAILY
     Route: 042
     Dates: start: 20171207
  3. IDARUBICIN HYDROCHLORIDE. [Suspect]
     Active Substance: IDARUBICIN HYDROCHLORIDE
     Indication: ACUTE MYELOID LEUKAEMIA
     Dosage: 24 MG, CYCLIC (FROM DAY 1 TO DAY 3)
     Route: 065
     Dates: start: 20171208, end: 20171210
  4. CYTARABINE. [Suspect]
     Active Substance: CYTARABINE
     Indication: ACUTE MYELOID LEUKAEMIA
     Dosage: 400 MG, CYCLIC (FROM DAYS 1 TO DAYS 7)
     Route: 065
     Dates: start: 20171208
  5. TAZOCILLINE [Concomitant]
     Active Substance: PIPERACILLIN SODIUM\TAZOBACTAM SODIUM
     Indication: SEPSIS
     Dosage: UNK
     Dates: start: 20171207
  6. POLYSTYRENE SULFONATE CALCIUM [Concomitant]
     Active Substance: CALCIUM POLYSTYRENE SULFONATE
     Indication: HYPERKALAEMIA
     Dosage: 80 GRAM DAILY; 80 G, DAILY
     Route: 048
     Dates: start: 20171209, end: 20171210
  7. PANTOPRAZOLE [Concomitant]
     Active Substance: PANTOPRAZOLE
     Indication: GASTROOESOPHAGEAL REFLUX PROPHYLAXIS
     Dosage: 20 MILLIGRAM DAILY; 20 MG, DAILY
     Route: 048
     Dates: start: 20171205
  8. ALLOPURINOL. [Concomitant]
     Active Substance: ALLOPURINOL
     Indication: PROPHYLAXIS
     Dosage: 300 MILLIGRAM DAILY; 300 MG, DAILY
     Route: 048
     Dates: start: 20171206
  9. ONDANSETRON [Concomitant]
     Active Substance: ONDANSETRON
     Indication: NAUSEA
     Dosage: 16 MILLIGRAM DAILY; 16 MG, DAILY
     Route: 042
     Dates: start: 20171208
  10. SEVELAMER [Concomitant]
     Active Substance: SEVELAMER
     Indication: BLOOD PHOSPHORUS INCREASED
     Dosage: 1.6 MILLIGRAM DAILY; 1.6 G, DAILY
     Route: 048
     Dates: start: 20171209, end: 20171210
  11. HYDREA [Concomitant]
     Active Substance: HYDROXYUREA
     Indication: LEUKAEMIA
     Dosage: 4 GRAM DAILY; 4 G, DAILY
     Route: 048
     Dates: start: 20171206, end: 20171208
  12. FASTURTEC [Concomitant]
     Active Substance: RASBURICASE
     Indication: PROPHYLAXIS
     Dosage: UNK
     Dates: start: 20171205
  13. URAPIDIL [Concomitant]
     Active Substance: URAPIDIL
     Indication: HYPERTENSION
     Dosage: 60 MILLIGRAM DAILY; 60 MG, DAILY
     Route: 048
     Dates: start: 20171205
  14. MANIDIPINE [Concomitant]
     Active Substance: MANIDIPINE
     Indication: HYPERTENSION
     Dosage: 10 MILLIGRAM DAILY; 10 MG, DAILY
     Route: 048
  15. LEVOTHYROXIN [Concomitant]
     Active Substance: LEVOTHYROXINE
     Indication: HYPOTHYROIDISM
     Dosage: 100 MILLIGRAM DAILY; 100 UG, DAILY
     Route: 048
  16. POSACONAZOLE [Concomitant]
     Active Substance: POSACONAZOLE
     Indication: INFECTION PROPHYLAXIS
     Dosage: 300 MILLIGRAM DAILY; 300 MG, DAILY
     Route: 048
     Dates: start: 20171208

REACTIONS (2)
  - Septic shock [Not Recovered/Not Resolved]
  - Neutropenic colitis [Not Recovered/Not Resolved]

NARRATIVE: CASE EVENT DATE: 20171210
